FAERS Safety Report 7101265-8 (Version None)
Quarter: 2010Q4

REPORT INFORMATION
  Report Type: 
  Country: None (occurrence: None)
  Receive Date: 20101115
  Receipt Date: 20100311
  Transmission Date: 20110411
  Serious: No
  Sender: FDA-Public Use
  Company Number: US-PFIZER INC-2010031899

PATIENT
  Sex: Male
  Weight: 95 kg

DRUGS (1)
  1. CLINDAMYCIN PHOSPHATE [Suspect]
     Indication: DRY SKIN
     Dosage: 60 ML, AS NEEDED
     Route: 061

REACTIONS (1)
  - DYSGEUSIA [None]
